FAERS Safety Report 5575899-6 (Version None)
Quarter: 2007Q4

REPORT INFORMATION
  Report Type: 
  Country: None (occurrence: None)
  Receive Date: 20071212
  Receipt Date: 20071218
  Transmission Date: 20080405
  Serious: Yes (Other)
  Sender: FDA-Public Use
  Company Number: 2007S1013511

PATIENT
  Age: 53 Year
  Sex: Male

DRUGS (1)
  1. WARFARIN SODIUM [Suspect]
     Indication: RHEUMATIC HEART DISEASE

REACTIONS (7)
  - CARDIOGENIC SHOCK [None]
  - HYPERBILIRUBINAEMIA [None]
  - INTERNATIONAL NORMALISED RATIO INCREASED [None]
  - LEUKOCYTOCLASTIC VASCULITIS [None]
  - PULMONARY OEDEMA [None]
  - SKIN NECROSIS [None]
  - TRANSAMINASES INCREASED [None]
